FAERS Safety Report 8889311 (Version 2)
Quarter: 2012Q4

REPORT INFORMATION
  Report Type: 
  Country: JP (occurrence: JP)
  Receive Date: 20121106
  Receipt Date: 20121126
  Transmission Date: 20130627
  Serious: Yes (Hospitalization)
  Sender: FDA-Public Use
  Company Number: JP-ASTRAZENECA-2012SE84005

PATIENT
  Age: 78 Year
  Sex: Male

DRUGS (4)
  1. SEROQUEL [Suspect]
     Indication: FRONTOTEMPORAL DEMENTIA
     Route: 048
  2. RISPERIDONE [Suspect]
     Indication: FRONTOTEMPORAL DEMENTIA
     Route: 048
  3. YOKUKAN-SAN [Concomitant]
     Indication: FRONTOTEMPORAL DEMENTIA
     Route: 065
  4. PEROSPIRONE [Concomitant]
     Indication: FRONTOTEMPORAL DEMENTIA

REACTIONS (3)
  - Frontotemporal dementia [Unknown]
  - Extrapyramidal disorder [Recovering/Resolving]
  - Drug ineffective for unapproved indication [Unknown]
